FAERS Safety Report 8143756-7 (Version None)
Quarter: 2012Q1

REPORT INFORMATION
  Report Type: 
  Country: None (occurrence: None)
  Receive Date: 20120217
  Receipt Date: 20120207
  Transmission Date: 20120608
  Serious: Yes (Other)
  Sender: FDA-Public Use
  Company Number: JP-SANOFI-AVENTIS-2012SA007575

PATIENT
  Age: 35 Year
  Sex: Male

DRUGS (15)
  1. MINOCYCLINE HCL [Concomitant]
     Route: 048
     Dates: start: 19970101, end: 20071025
  2. GOREI-SAN [Concomitant]
     Route: 048
     Dates: start: 19970101, end: 20071025
  3. DORAL [Suspect]
     Route: 048
     Dates: start: 20100101
  4. ROHYPNOL [Concomitant]
     Indication: DEPRESSION
     Route: 048
     Dates: start: 19970101, end: 20071025
  5. LEXOTAN [Concomitant]
     Dates: start: 20091001
  6. HIRNAMIN [Concomitant]
     Dates: start: 20100101
  7. AMOBAN [Concomitant]
     Dates: start: 20080401
  8. LENDORMIN [Concomitant]
     Route: 048
     Dates: start: 19970101, end: 20071025
  9. ZOLPIDEM [Suspect]
     Route: 048
     Dates: start: 20091001
  10. DESYREL [Concomitant]
     Dates: start: 20091001
  11. DEPAS [Concomitant]
     Indication: DEPRESSION
     Route: 048
     Dates: start: 19970101, end: 20071025
  12. DOGMATYL [Concomitant]
     Dates: start: 20100101
  13. PHENOBARBITAL TAB [Concomitant]
     Route: 048
     Dates: start: 20070901, end: 20080125
  14. MEFENAMIC ACID [Concomitant]
     Route: 048
     Dates: start: 19970101, end: 20071025
  15. PREDNISOLONE [Concomitant]
     Dosage: DOSE WAS DECREASED GRADUALLY AND STOPPED
     Route: 048
     Dates: start: 20071102, end: 20090908

REACTIONS (2)
  - DRUG RASH WITH EOSINOPHILIA AND SYSTEMIC SYMPTOMS [None]
  - CONDITION AGGRAVATED [None]
